FAERS Safety Report 17836332 (Version 1)
Quarter: 2020Q2

REPORT INFORMATION
  Report Type: Spontaneous
  Country: FR (occurrence: FR)
  Receive Date: 20200529
  Receipt Date: 20200529
  Transmission Date: 20200714
  Serious: No
  Sender: FDA-Public Use
  Company Number: FR-TOLMAR, INC.-19FR019834

PATIENT
  Age: 71 Year

DRUGS (1)
  1. ELIGARD [Suspect]
     Active Substance: LEUPROLIDE ACETATE
     Indication: PROSTATE CANCER
     Dosage: 22.5 MG, EVERY 3 MONTHS
     Route: 058

REACTIONS (4)
  - Wrong technique in product usage process [None]
  - Syringe issue [None]
  - Intercepted product preparation error [None]
  - Product physical issue [None]

NARRATIVE: CASE EVENT DATE: 20191226
